FAERS Safety Report 9646332 (Version 2)
Quarter: 2014Q1

REPORT INFORMATION
  Report Type: Spontaneous
  Country: GB (occurrence: GB)
  Receive Date: 20131025
  Receipt Date: 20140127
  Transmission Date: 20141002
  Serious: Yes (Death, Other)
  Sender: FDA-Public Use
  Company Number: GB-B.I. PHARMACEUTICALS,INC./RIDGEFIELD-2013-BI-34138UK

PATIENT
  Age: 83 Year
  Sex: Female
  Weight: 50.6 kg

DRUGS (23)
  1. PRADAXA [Suspect]
     Dosage: 220 MG
     Route: 048
     Dates: start: 20130419, end: 20130503
  2. CLOPIDOGREL [Suspect]
     Indication: CAROTID ARTERY STENOSIS
     Dosage: 75 MG
     Route: 048
     Dates: start: 20130415, end: 20130503
  3. ADCAL-D3 [Concomitant]
  4. ALENDRONATE [Concomitant]
  5. AMLODIPINE [Concomitant]
  6. ATORVASTATIN [Concomitant]
  7. BENDROFLUMETHIAZIDE [Concomitant]
  8. CITALOPRAM [Concomitant]
  9. CYCLIZINE [Concomitant]
  10. LACTULOSE [Concomitant]
  11. LANSOPRAZOL [Concomitant]
  12. LAXIDO [Concomitant]
  13. MAGNESIUM GLYCEROPHOSPHATE [Concomitant]
  14. MICROLAX [Concomitant]
  15. OMEPRAZOLE [Concomitant]
     Route: 042
  16. PHOSPHATE BUFFER SOLUTION [Concomitant]
     Route: 054
  17. PREDNISOLONE [Concomitant]
  18. RAMIPRIL [Concomitant]
  19. RANITIDINE [Concomitant]
  20. SIMVASTATIN [Concomitant]
  21. TOLTERODINE [Concomitant]
  22. TRAMADOL [Concomitant]
  23. TRIMETHOPRIM [Concomitant]

REACTIONS (2)
  - Sepsis [Fatal]
  - Gastrointestinal haemorrhage [Fatal]
